FAERS Safety Report 6252139-6 (Version None)
Quarter: 2009Q2

REPORT INFORMATION
  Report Type: 
  Country: None (occurrence: None)
  Receive Date: 20090630
  Receipt Date: 20070927
  Transmission Date: 20091009
  Serious: Yes (Hospitalization)
  Sender: FDA-Public Use
  Company Number: US-ROCHE-639492

PATIENT
  Sex: Female

DRUGS (7)
  1. ENFUVIRTIDE [Suspect]
     Indication: HIV INFECTION
     Route: 065
     Dates: start: 20070606, end: 20070101
  2. ENFUVIRTIDE [Suspect]
     Route: 065
     Dates: start: 20080211, end: 20080814
  3. EPIVIR [Concomitant]
     Dates: start: 20070123, end: 20070101
  4. ISENTRESS [Concomitant]
     Dates: start: 20070606, end: 20070101
  5. NORVIR [Concomitant]
     Dates: start: 20070606, end: 20070101
  6. PREZISTA [Concomitant]
     Dates: start: 20070606, end: 20070101
  7. ZITHROMAX [Concomitant]
     Dates: start: 20070320, end: 20080814

REACTIONS (1)
  - BRADYCARDIA [None]
